FAERS Safety Report 8533782-8 (Version None)
Quarter: 2012Q3

REPORT INFORMATION
  Report Type: 
  Country: None (occurrence: None)
  Receive Date: 20120711
  Receipt Date: 20120628
  Transmission Date: 20120928
  Serious: Yes (Disabling, Other)
  Sender: FDA-Public Use
  Company Number: USA/USA/12/0024770

PATIENT
  Age: 49 Year
  Sex: Male
  Weight: 117.9352 kg

DRUGS (20)
  1. COUMADIN [Concomitant]
  2. KLOR-CON [Concomitant]
  3. LANTUS [Concomitant]
  4. XANAX [Concomitant]
  5. NITROSTAT [Concomitant]
  6. RANITIDINE [Suspect]
     Indication: HYPERCHLORHYDRIA
     Dosage: 150 MG, 2 IN 1 D, ORAL  5 YEARS AGO
     Route: 048
  7. TRILEPTAL [Concomitant]
  8. SILENOR (DOXEPIN HYDROCHLORIDE) [Concomitant]
  9. DIOVAN [Concomitant]
  10. METOPROLOL SUCCINATE [Concomitant]
  11. RANEXA [Concomitant]
  12. STOOL SOFTENER (DOCUSATE SODIUM) [Concomitant]
  13. CIMETIDINE [Suspect]
     Indication: HYPERCHLORHYDRIA
     Dosage: 200 MG, 1 IN 1 D, ORAL
     Route: 048
     Dates: end: 20120618
  14. VYTORIN [Concomitant]
  15. MULTIVITAMIN (VIGRAN) [Concomitant]
  16. LASIX [Concomitant]
  17. FOLIC ACID [Concomitant]
  18. ASPIRIN [Concomitant]
  19. NOVOLOG [Concomitant]
  20. NEURONTIN [Concomitant]

REACTIONS (2)
  - DYSPHEMIA [None]
  - TREMOR [None]
